FAERS Safety Report 13540047 (Version 2)
Quarter: 2017Q2

REPORT INFORMATION
  Report Type: Spontaneous
  Country: US (occurrence: US)
  Receive Date: 20170512
  Receipt Date: 20170607
  Transmission Date: 20170830
  Serious: No
  Sender: FDA-Public Use
  Company Number: US-GLAXOSMITHKLINE-US2017GSK068276

PATIENT
  Sex: Female

DRUGS (1)
  1. LOVAZA [Suspect]
     Active Substance: OMEGA-3-ACID ETHYL ESTERS
     Indication: DIABETES MELLITUS
     Dosage: UNK, QD

REACTIONS (4)
  - Drug dose omission [Unknown]
  - Off label use [Unknown]
  - Intentional underdose [Unknown]
  - Treatment noncompliance [Unknown]
